FAERS Safety Report 6997426-9 (Version None)
Quarter: 2010Q3

REPORT INFORMATION
  Report Type: 
  Country: None (occurrence: None)
  Receive Date: 20100918
  Receipt Date: 20091008
  Transmission Date: 20110219
  Serious: No
  Sender: FDA-Public Use
  Company Number: US-WYE-H11542009

PATIENT
  Sex: Female

DRUGS (3)
  1. PRISTIQ [Suspect]
     Indication: ANXIETY
     Route: 048
     Dates: start: 20091001
  2. KLONOPIN [Concomitant]
  3. IMODIUM [Concomitant]

REACTIONS (2)
  - DRUG EFFECT DECREASED [None]
  - MEDICATION RESIDUE [None]
